FAERS Safety Report 20827373 (Version 1)
Quarter: 2022Q2

REPORT INFORMATION
  Report Type: Spontaneous
  Country: AU (occurrence: AU)
  Receive Date: 20220513
  Receipt Date: 20220513
  Transmission Date: 20220720
  Serious: Yes (Other)
  Sender: FDA-Public Use
  Company Number: AU-CELGENE-AUS-20211206705

PATIENT
  Age: 80 Year
  Sex: Female
  Weight: 4 kg

DRUGS (20)
  1. AZACITIDINE [Suspect]
     Active Substance: AZACITIDINE
     Indication: Acute myeloid leukaemia
     Dosage: FREQUENCY TEXT: NOT PROVIDED
     Route: 042
     Dates: start: 20211213, end: 20211213
  2. BGB-11417 [Suspect]
     Active Substance: BGB-11417
     Indication: Acute myeloid leukaemia
     Route: 048
     Dates: start: 20211214, end: 20211214
  3. MAGNESIUM CHLORIDE [Concomitant]
     Active Substance: MAGNESIUM CHLORIDE
     Indication: Product used for unknown indication
     Route: 065
     Dates: start: 2000
  4. VITAMIN D [Concomitant]
     Active Substance: VITAMIN D NOS
     Dates: start: 2000
  5. HYDROXYUREA [Concomitant]
     Active Substance: HYDROXYUREA
     Indication: Leukopenia
     Dates: start: 20211205, end: 20211213
  6. HYDROXYUREA [Concomitant]
     Active Substance: HYDROXYUREA
     Dates: start: 20211208, end: 20211213
  7. HYDROXYUREA [Concomitant]
     Active Substance: HYDROXYUREA
  8. FEXOFENADINE HYDROCHLORIDE [Concomitant]
     Active Substance: FEXOFENADINE HYDROCHLORIDE
  9. FEXOFENADINE HYDROCHLORIDE [Concomitant]
     Active Substance: FEXOFENADINE HYDROCHLORIDE
  10. SULFAMETHOXAZOLE [Concomitant]
     Active Substance: SULFAMETHOXAZOLE
  11. TRIMETHOPRIM [Concomitant]
     Active Substance: TRIMETHOPRIM
  12. TRIMETHOPRIM [Concomitant]
     Active Substance: TRIMETHOPRIM
  13. CHOLECALCIFEROL [Concomitant]
     Active Substance: CHOLECALCIFEROL
  14. FOLIC ACID [Concomitant]
     Active Substance: FOLIC ACID
  15. HYDROXYUREA [Concomitant]
     Active Substance: HYDROXYUREA
  16. ALLOPURINOL [Concomitant]
     Active Substance: ALLOPURINOL
  17. MAGNESIUM HYDROXIDE [Concomitant]
     Active Substance: MAGNESIUM HYDROXIDE
  18. BACTRIM [Concomitant]
     Active Substance: SULFAMETHOXAZOLE\TRIMETHOPRIM
     Indication: Prophylaxis
     Dosage: UNK
     Route: 048
     Dates: start: 20211205
  19. VITAMIN D [Concomitant]
     Active Substance: VITAMIN D NOS
     Indication: Vitamin supplementation
     Dosage: UNK
     Route: 048
     Dates: start: 2020
  20. FEXOFENADINE [Concomitant]
     Active Substance: FEXOFENADINE HYDROCHLORIDE
     Indication: Seasonal allergy
     Route: 048
     Dates: start: 2000

REACTIONS (1)
  - Pyrexia [Recovered/Resolved]

NARRATIVE: CASE EVENT DATE: 20211213
